FAERS Safety Report 7810353-X (Version None)
Quarter: 2011Q4

REPORT INFORMATION
  Report Type: 
  Country: None (occurrence: None)
  Receive Date: 20111012
  Receipt Date: 20111005
  Transmission Date: 20120403
  Serious: Yes (Death, Hospitalization, Other)
  Sender: FDA-Public Use
  Company Number: PHEH2008US09016

PATIENT
  Sex: Female
  Weight: 70.748 kg

DRUGS (72)
  1. AREDIA [Suspect]
     Dosage: 90 MG, UNK
     Dates: start: 20040324, end: 20070326
  2. GLYBURIDE [Concomitant]
     Dosage: UNK
     Route: 048
  3. PREDNISONE TAB [Concomitant]
     Dosage: UNK
  4. GLUCOVANCE [Concomitant]
     Dosage: UNK
  5. AMOXICILLIN [Concomitant]
     Dosage: UNK
     Route: 048
  6. AMBIEN [Concomitant]
     Dosage: UNK
     Route: 048
  7. PROZAC [Concomitant]
     Dosage: UNK
     Route: 048
  8. MORPHINE SULFATE [Concomitant]
  9. SUBLIMAZE PRESERVATIVE FREE [Concomitant]
  10. BREVIBLOC [Concomitant]
  11. LOVENOX [Concomitant]
  12. LASIX [Concomitant]
  13. TUSSIONEX [Concomitant]
     Dosage: UNK
  14. AMPICILLIN TRIHYDRATE [Concomitant]
     Dosage: UNK
  15. ALEVE                              /00256202/ [Concomitant]
     Dosage: UKN, PRN
     Route: 048
  16. HUMALOG [Concomitant]
     Dosage: UNK
     Route: 058
  17. NEURONTIN [Concomitant]
     Dosage: UNK
     Route: 048
  18. DEXAMETHASONE [Concomitant]
     Dosage: 20 MG, QW
  19. ETOMIDATE [Concomitant]
  20. CEPHALEXIN [Concomitant]
     Dosage: UNK
  21. ACIPHEX [Concomitant]
     Route: 048
  22. ZOLOFT [Concomitant]
     Route: 048
  23. MECLIZINE [Concomitant]
     Route: 048
  24. LANTUS [Concomitant]
     Dosage: UNK
     Route: 058
  25. CEFOTAN [Concomitant]
  26. NOVOLIN 70/30 [Concomitant]
  27. TEMAZEPAM [Concomitant]
     Dosage: UNK
  28. GABAPENTIN [Concomitant]
     Dosage: UNK
  29. LORTAB [Concomitant]
     Dosage: UNK
     Route: 048
  30. LOVASTATIN [Concomitant]
     Dosage: UNK
     Route: 048
  31. DECADRON [Concomitant]
     Dosage: UNK
  32. CEFTIN [Concomitant]
     Dosage: UNK
  33. MELPHALAN HYDROCHLORIDE [Concomitant]
     Dosage: UNK
  34. NEXIUM [Concomitant]
     Dosage: UNK
     Route: 048
  35. ZOFRAN [Concomitant]
     Dosage: 32 MG, UNK
  36. PEPCID [Concomitant]
  37. LEVAQUIN [Concomitant]
     Dosage: UNK
  38. PROPOXYPHENE NAPSYLATE W/ ACETAMINOPHEN [Concomitant]
     Dosage: UNK
  39. HYDROCODONE BITARTRATE AND ACETAMINOPHEN [Concomitant]
     Dosage: UNK
  40. PROCHLORPERAZINE [Concomitant]
     Dosage: UNK
  41. BLOOD TRANSFUSION, AUXILIARY PRODUCTS [Concomitant]
  42. CELEBREX [Concomitant]
     Dosage: UNK
     Route: 048
  43. ARANESP [Concomitant]
     Dosage: UNK
  44. RESTORIL [Concomitant]
     Dosage: UNK
     Route: 048
  45. PROCRIT                            /00909301/ [Concomitant]
     Dosage: UNK
  46. ZITHROMAX [Concomitant]
     Dosage: UNK
     Dates: start: 20060111
  47. CIPROFLOXACIN [Concomitant]
     Dosage: UNK
  48. ACTOS [Concomitant]
     Route: 048
  49. OXYCODONE HCL AND ACETAMINOPHEN [Concomitant]
     Dosage: UNK
  50. GENTAMICIN EYE DROPS BP 2003 [Concomitant]
     Dosage: UNK
  51. CHEMOTHERAPEUTICS NOS [Concomitant]
  52. LEUKERAN [Concomitant]
     Dosage: UNK
  53. THALIDOMIDE [Concomitant]
     Dosage: UNK
     Route: 048
  54. XANAX [Concomitant]
     Dosage: UNK
     Route: 048
  55. COMPAZINE [Concomitant]
  56. FENTANYL [Concomitant]
  57. ALKERAN [Concomitant]
     Dosage: UNK
  58. ALPRAZOLAM [Concomitant]
     Dosage: UNK
  59. FUROSEMIDE [Concomitant]
     Dosage: UNK
  60. WARFARIN SODIUM [Concomitant]
     Dosage: UNK
  61. PEG 3350 AND ELECTROLYTES [Concomitant]
     Dosage: UNK
  62. COUMADIN [Concomitant]
     Route: 048
  63. ADRIABLASTIN + VCR + DACARBAZINE [Concomitant]
     Dosage: 15 MG, UNK
  64. VELCADE [Concomitant]
     Dosage: UNK
  65. NEOSTIGMINE [Concomitant]
  66. ROBINUL [Concomitant]
  67. ACETAMINOPHEN [Concomitant]
  68. GLIPIZIDE [Concomitant]
     Dosage: UNK
  69. NYSTATIN [Concomitant]
     Dosage: UNK
  70. FLUMIL (FLUCONAZOLE) [Concomitant]
     Dosage: UNK
  71. AZITHROMYCIN [Concomitant]
     Dosage: UNK
  72. ACYCLOVIR [Concomitant]
     Dosage: UNK

REACTIONS (58)
  - ANHEDONIA [None]
  - TOOTH FRACTURE [None]
  - ADNEXA UTERI MASS [None]
  - BALANCE DISORDER [None]
  - COUGH [None]
  - PULMONARY OEDEMA [None]
  - BREAST MASS [None]
  - PNEUMONIA PRIMARY ATYPICAL [None]
  - RESPIRATORY FAILURE [None]
  - LUNG NEOPLASM [None]
  - SPONDYLOLISTHESIS [None]
  - RED BLOOD CELL ABNORMALITY [None]
  - INJURY [None]
  - DISABILITY [None]
  - DIZZINESS [None]
  - MULTIPLE MYELOMA [None]
  - CERVICITIS [None]
  - LUNG INFILTRATION [None]
  - DEEP VEIN THROMBOSIS [None]
  - LIGAMENT SPRAIN [None]
  - EXCORIATION [None]
  - BEDRIDDEN [None]
  - JOINT DISLOCATION [None]
  - ANAEMIA [None]
  - ENDOMETRIAL ATROPHY [None]
  - INTERSTITIAL LUNG DISEASE [None]
  - CEREBROVASCULAR ACCIDENT [None]
  - PAIN [None]
  - JOINT EFFUSION [None]
  - INTERVERTEBRAL DISC DEGENERATION [None]
  - UTERINE POLYP [None]
  - RENAL FAILURE ACUTE [None]
  - UPPER RESPIRATORY TRACT INFECTION [None]
  - EAR INFECTION [None]
  - ANXIETY [None]
  - BONE DISORDER [None]
  - ARTHRALGIA [None]
  - ABDOMINAL PAIN [None]
  - JOINT SWELLING [None]
  - SPINAL COMPRESSION FRACTURE [None]
  - UTERINE CERVICAL SQUAMOUS METAPLASIA [None]
  - THROMBOCYTOPENIA [None]
  - ORAL DISORDER [None]
  - HYPOGLYCAEMIA [None]
  - WEIGHT DECREASED [None]
  - HYPONATRAEMIA [None]
  - DEPRESSION [None]
  - OVARIAN MASS [None]
  - HYPERGLYCAEMIA [None]
  - OSTEONECROSIS OF JAW [None]
  - CONTUSION [None]
  - OEDEMA PERIPHERAL [None]
  - OSTEOLYSIS [None]
  - PYREXIA [None]
  - FALL [None]
  - HIATUS HERNIA [None]
  - SYNOVIAL CYST [None]
  - ARTHRITIS [None]
